FAERS Safety Report 7092719-1 (Version None)
Quarter: 2010Q4

REPORT INFORMATION
  Report Type: 
  Country: None (occurrence: None)
  Receive Date: 20101109
  Receipt Date: 20101109
  Transmission Date: 20110411
  Serious: No
  Sender: FDA-Public Use
  Company Number: None

PATIENT
  Age: 45 Year
  Sex: Female
  Weight: 105.6881 kg

DRUGS (3)
  1. CARBOPLATIN [Suspect]
     Indication: BREAST CANCER
     Dosage: 550MG IV EVERY 3WKS
     Route: 040
     Dates: start: 20100701, end: 20101022
  2. TAXOTERE [Concomitant]
  3. HERCEPTIN [Concomitant]

REACTIONS (3)
  - ANXIETY [None]
  - NAUSEA [None]
  - RESTLESSNESS [None]
